FAERS Safety Report 14380441 (Version 2)
Quarter: 2018Q1

REPORT INFORMATION
  Report Type: Spontaneous
  Country: US (occurrence: US)
  Receive Date: 20180112
  Receipt Date: 20180305
  Transmission Date: 20180509
  Serious: Yes (Other)
  Sender: FDA-Public Use
  Company Number: US-GLAXOSMITHKLINE-US2018003357

PATIENT
  Age: 61 Year
  Sex: Female

DRUGS (22)
  1. LORAZEPAM. [Concomitant]
     Active Substance: LORAZEPAM
  2. SPIRIVA [Concomitant]
     Active Substance: TIOTROPIUM BROMIDE MONOHYDRATE
  3. TIZANIDINE. [Concomitant]
     Active Substance: TIZANIDINE
  4. VENTOLIN HFA [Suspect]
     Active Substance: ALBUTEROL SULFATE
     Indication: CHRONIC OBSTRUCTIVE PULMONARY DISEASE
     Dosage: 2 PUFF(S), 6D
     Route: 055
     Dates: start: 2012
  5. ALENDRONATE SODIUM. [Concomitant]
     Active Substance: ALENDRONATE SODIUM
  6. VITAMIN B12 SHOTS [Concomitant]
  7. OXYGEN. [Concomitant]
     Active Substance: OXYGEN
  8. VITAMIN D3 [Concomitant]
     Active Substance: CHOLECALCIFEROL
  9. BENADRYL AH [Concomitant]
  10. CALCIUM [Concomitant]
     Active Substance: CALCIUM
  11. OMEPRAZOLE. [Concomitant]
     Active Substance: OMEPRAZOLE
  12. SAVELLA [Concomitant]
     Active Substance: MILNACIPRAN HYDROCHLORIDE
  13. PROMETHAZINE [Concomitant]
     Active Substance: PROMETHAZINE\PROMETHAZINE HYDROCHLORIDE
  14. SIMVASTATIN. [Concomitant]
     Active Substance: SIMVASTATIN
  15. ALBUTEROL SULFATE. [Concomitant]
     Active Substance: ALBUTEROL SULFATE
  16. CITALOPRAM HYDROBROMIDE. [Concomitant]
     Active Substance: CITALOPRAM HYDROBROMIDE
  17. OXYCODONE [Concomitant]
     Active Substance: OXYCODONE
  18. BENZONATATE. [Concomitant]
     Active Substance: BENZONATATE
  19. BIOTIN [Concomitant]
     Active Substance: BIOTIN
  20. METOPROLOL. [Concomitant]
     Active Substance: METOPROLOL
  21. SYMBICORT [Concomitant]
     Active Substance: BUDESONIDE\FORMOTEROL FUMARATE DIHYDRATE
  22. TRAZODONE [Concomitant]
     Active Substance: TRAZODONE HYDROCHLORIDE

REACTIONS (22)
  - Pulmonary oedema [Unknown]
  - Aspiration pleural cavity [Recovered/Resolved]
  - Headache [Unknown]
  - Bronchitis [Not Recovered/Not Resolved]
  - Sinusitis [Not Recovered/Not Resolved]
  - Insomnia [Not Recovered/Not Resolved]
  - Malaise [Not Recovered/Not Resolved]
  - Chest pain [Unknown]
  - Lower respiratory tract congestion [Unknown]
  - Productive cough [Unknown]
  - Overdose [Unknown]
  - Drug effect decreased [Unknown]
  - Condition aggravated [Unknown]
  - Respiratory tract infection [Not Recovered/Not Resolved]
  - Pleurisy [Recovered/Resolved]
  - Oxygen saturation decreased [Not Recovered/Not Resolved]
  - Sputum discoloured [Unknown]
  - Multiple allergies [Unknown]
  - Chronic obstructive pulmonary disease [Unknown]
  - Cough [Not Recovered/Not Resolved]
  - Rhinorrhoea [Unknown]
  - Fatigue [Unknown]

NARRATIVE: CASE EVENT DATE: 2014
